FAERS Safety Report 7972524-1 (Version None)
Quarter: 2011Q4

REPORT INFORMATION
  Report Type: 
  Country: None (occurrence: None)
  Receive Date: 20111209
  Receipt Date: 20111129
  Transmission Date: 20120403
  Serious: Yes (Other)
  Sender: FDA-Public Use
  Company Number: TPA2011A08077

PATIENT
  Age: 68 Year
  Sex: Female

DRUGS (5)
  1. METFORMIN HCL [Concomitant]
  2. ACTOS [Suspect]
     Indication: TYPE 2 DIABETES MELLITUS
     Dosage: SEE IMAGE
     Route: 048
     Dates: start: 20040115, end: 20110101
  3. ACTOS [Suspect]
     Indication: TYPE 2 DIABETES MELLITUS
     Dosage: SEE IMAGE
     Route: 048
     Dates: start: 20030327, end: 20040114
  4. ACTOS [Suspect]
     Indication: TYPE 2 DIABETES MELLITUS
     Dosage: SEE IMAGE
     Route: 048
     Dates: start: 20000412, end: 20000512
  5. GLYBURIDE [Concomitant]

REACTIONS (1)
  - BLADDER CANCER [None]
